FAERS Safety Report 5399360-7 (Version None)
Quarter: 2007Q3

REPORT INFORMATION
  Report Type: 
  Country: None (occurrence: None)
  Receive Date: 20070727
  Receipt Date: 20070717
  Transmission Date: 20080115
  Serious: Yes (Hospitalization)
  Sender: FDA-Public Use
  Company Number: US-ROCHE-507913

PATIENT
  Age: 80 Year
  Sex: Female

DRUGS (14)
  1. BONIVA [Suspect]
     Indication: OSTEOPOROSIS
     Route: 065
     Dates: start: 20070301, end: 20070501
  2. NAMENDA [Suspect]
     Route: 048
     Dates: start: 20070507, end: 20070513
  3. NAMENDA [Suspect]
     Route: 048
     Dates: start: 20070514, end: 20070520
  4. NAMENDA [Suspect]
     Route: 048
     Dates: start: 20070521, end: 20070527
  5. NAMENDA [Suspect]
     Route: 048
     Dates: start: 20070528
  6. MUCINEX [Concomitant]
  7. LOTREL [Concomitant]
  8. POTASSIUM CHLORIDE [Concomitant]
  9. PAXIL [Concomitant]
  10. CLONAZEPAM [Concomitant]
  11. ADVAIR DISKUS 100/50 [Concomitant]
  12. SPIRIVA [Concomitant]
  13. ALBUTEROL [Concomitant]
  14. VITAMINS NOS [Concomitant]

REACTIONS (3)
  - BLOOD IRON DECREASED [None]
  - OEDEMA PERIPHERAL [None]
  - RENAL IMPAIRMENT [None]
